FAERS Safety Report 12363639 (Version 2)
Quarter: 2016Q3

REPORT INFORMATION
  Report Type: Spontaneous
  Country: US (occurrence: US)
  Receive Date: 20160512
  Receipt Date: 20160705
  Transmission Date: 20161109
  Serious: Yes (Other)
  Sender: FDA-Public Use
  Company Number: US-BAYER-2016-091998

PATIENT
  Age: 37 Year
  Sex: Female
  Weight: 58.5 kg

DRUGS (1)
  1. MIRENA [Suspect]
     Active Substance: LEVONORGESTREL
     Indication: CONTRACEPTION
     Dosage: 20 MCG/24HR, CONT
     Route: 015
     Dates: start: 20160316

REACTIONS (3)
  - Menorrhagia [None]
  - Device dislocation [None]
  - Menstruation irregular [None]

NARRATIVE: CASE EVENT DATE: 2016
